FAERS Safety Report 7529684-6 (Version None)
Quarter: 2011Q2

REPORT INFORMATION
  Report Type: 
  Country: None (occurrence: None)
  Receive Date: 20110607
  Receipt Date: 20110525
  Transmission Date: 20111010
  Serious: Yes (Hospitalization)
  Sender: FDA-Public Use
  Company Number: A0930119A

PATIENT
  Age: 66 Year
  Sex: Male

DRUGS (3)
  1. ABACAVIR SULFATE AND LAMIVUDINE [Suspect]
     Indication: ANTIRETROVIRAL THERAPY
     Route: 048
     Dates: start: 20110502, end: 20110508
  2. ATORVASTATIN CALCIUM [Concomitant]
  3. COUMADIN [Concomitant]

REACTIONS (9)
  - PYREXIA [None]
  - ORAL HERPES [None]
  - HEADACHE [None]
  - PALMAR ERYTHEMA [None]
  - ARTHRALGIA [None]
  - NASOPHARYNGITIS [None]
  - HYPERSENSITIVITY [None]
  - RASH [None]
  - MYALGIA [None]
